FAERS Safety Report 5352017-0 (Version None)
Quarter: 2007Q2

REPORT INFORMATION
  Report Type: 
  Country: None (occurrence: None)
  Receive Date: 20070611
  Receipt Date: 20070605
  Transmission Date: 20071010
  Serious: Yes (Life-Threatening)
  Sender: FDA-Public Use
  Company Number: PHFR2007GB01809

PATIENT
  Age: 30 Year
  Sex: Male

DRUGS (1)
  1. BACLOFEN [Suspect]
     Indication: MUSCLE SPASMS
     Dosage: 1 DF, PRN
     Route: 048
     Dates: start: 20070515, end: 20070515

REACTIONS (1)
  - LOSS OF CONSCIOUSNESS [None]
